FAERS Safety Report 6414100-8 (Version None)
Quarter: 2009Q4

REPORT INFORMATION
  Report Type: 
  Country: None (occurrence: None)
  Receive Date: 20091026
  Receipt Date: 20091019
  Transmission Date: 20100525
  Serious: Yes (Hospitalization)
  Sender: FDA-Public Use
  Company Number: IT-MERCK-0910ITA00031

PATIENT
  Age: 76 Year
  Sex: Male

DRUGS (11)
  1. COZAAR [Suspect]
     Indication: HYPERTENSION
     Route: 048
     Dates: start: 20090901, end: 20090917
  2. FERRITIN [Suspect]
     Indication: IRON DEFICIENCY ANAEMIA
     Route: 048
     Dates: start: 20090901, end: 20090917
  3. NIFEDIPINE [Concomitant]
     Route: 048
  4. DIGOXIN [Concomitant]
     Route: 048
  5. FUROSEMIDE [Concomitant]
     Route: 048
  6. METFORMIN HYDROCHLORIDE [Concomitant]
     Route: 048
  7. PIOGLITAZONE HYDROCHLORIDE [Concomitant]
     Route: 048
  8. INSULIN LISPRO [Concomitant]
     Route: 058
  9. ASPIRIN [Concomitant]
     Route: 048
  10. LANSOPRAZOLE [Concomitant]
     Route: 048
  11. ISOSORBIDE MONONITRATE [Concomitant]
     Route: 048

REACTIONS (1)
  - PETECHIAE [None]
